FAERS Safety Report 4542805-2 (Version None)
Quarter: 2004Q4

REPORT INFORMATION
  Report Type: 
  Country: None (occurrence: None)
  Receive Date: 20041229
  Receipt Date: 20041216
  Transmission Date: 20050328
  Serious: Yes (Hospitalization)
  Sender: FDA-Public Use
  Company Number: K200401947

PATIENT
  Age: 55 Year
  Sex: Male
  Weight: 144.7 kg

DRUGS (5)
  1. SKELAXIN [Suspect]
     Indication: MYALGIA
     Dosage: 800 MG, QD, ORAL
     Route: 048
     Dates: start: 20041027, end: 20041110
  2. VERAPAMIL (VARAPAMIL) [Concomitant]
  3. GLIPIZIDE [Concomitant]
  4. ALTACE [Concomitant]
  5. METFORMIN HCL [Concomitant]

REACTIONS (7)
  - BLOOD GLUCOSE INCREASED [None]
  - GLYCOSYLATED HAEMOGLOBIN INCREASED [None]
  - NEUTROPHIL PERCENTAGE INCREASED [None]
  - PIGMENTATION BUCCAL [None]
  - SINUS CONGESTION [None]
  - THROMBOCYTOPENIC PURPURA [None]
  - WHITE BLOOD CELL COUNT INCREASED [None]
